FAERS Safety Report 9945140 (Version 1)
Quarter: 2014Q1

REPORT INFORMATION
  Report Type: Report from Study
  Country: US (occurrence: US)
  Receive Date: 20140303
  Receipt Date: 20140303
  Transmission Date: 20141002
  Serious: No
  Sender: FDA-Public Use
  Company Number: US-ABBVIE-13P-163-1054544-00

PATIENT
  Sex: Male
  Weight: 85.81 kg

DRUGS (22)
  1. HUMIRA [Suspect]
     Indication: PSORIATIC ARTHROPATHY
     Dates: start: 201201
  2. METHOTREXATE [Concomitant]
     Indication: PSORIATIC ARTHROPATHY
  3. PREDNISONE [Concomitant]
     Indication: PSORIATIC ARTHROPATHY
  4. FOLIC ACID [Concomitant]
     Indication: LIVER DISORDER
  5. LABETALOL [Concomitant]
     Indication: HEART RATE
  6. LABETALOL [Concomitant]
     Indication: BLOOD PRESSURE
  7. DIAZEPAM [Concomitant]
     Indication: PRODUCT USED FOR UNKNOWN INDICATION
  8. NITRO STAT [Concomitant]
     Indication: CARDIAC DISORDER
     Dosage: AS NEEDED
  9. PLAVIX [Concomitant]
     Indication: ANTICOAGULANT THERAPY
  10. FLEXERIL [Concomitant]
     Indication: MYALGIA
  11. FLEXERIL [Concomitant]
     Indication: MUSCLE SPASMS
  12. PHENERGAN [Concomitant]
     Indication: NAUSEA
  13. AMARIL [Concomitant]
     Indication: DIABETES MELLITUS
  14. PROTONIX [Concomitant]
     Indication: DYSPEPSIA
  15. LEUCOVORIN [Concomitant]
     Indication: PRODUCT USED FOR UNKNOWN INDICATION
  16. LEUCOVORIN [Concomitant]
     Indication: ADVERSE DRUG REACTION
  17. LASIX [Concomitant]
     Indication: FLUID RETENTION
  18. OXYCODONE [Concomitant]
     Indication: PAIN
  19. OXYCONTIN [Concomitant]
     Indication: PAIN
  20. TEMAZEPAM [Concomitant]
     Indication: INSOMNIA
  21. FLAX SEED OIL [Concomitant]
     Indication: PRODUCT USED FOR UNKNOWN INDICATION
  22. VOLTAREN [Concomitant]
     Indication: ARTHRALGIA

REACTIONS (3)
  - Candida infection [Recovered/Resolved]
  - Candida infection [Recovered/Resolved]
  - Sinusitis [Recovered/Resolved]
